FAERS Safety Report 7260686-3 (Version None)
Quarter: 2011Q1

REPORT INFORMATION
  Report Type: 
  Country: None (occurrence: None)
  Receive Date: 20110130
  Receipt Date: 20101220
  Transmission Date: 20110831
  Serious: No
  Sender: FDA-Public Use
  Company Number: US-ABBOTT-10P-163-0693000-00

PATIENT
  Sex: Female
  Weight: 65.83 kg

DRUGS (2)
  1. SULFASALAZINE [Concomitant]
     Indication: RHEUMATOID ARTHRITIS
  2. HUMIRA [Suspect]
     Indication: RHEUMATOID ARTHRITIS
     Dates: start: 20091001

REACTIONS (4)
  - ABDOMINAL PAIN UPPER [None]
  - RESPIRATORY TRACT INFECTION [None]
  - OROPHARYNGEAL PAIN [None]
  - ABDOMINAL DISTENSION [None]
